FAERS Safety Report 7672952-8 (Version None)
Quarter: 2011Q3

REPORT INFORMATION
  Report Type: 
  Country: None (occurrence: None)
  Receive Date: 20110809
  Receipt Date: 20110803
  Transmission Date: 20111222
  Serious: Yes (Other)
  Sender: FDA-Public Use
  Company Number: NL-ABBOTT-11P-114-0730477-00

PATIENT
  Sex: Male
  Weight: 90 kg

DRUGS (12)
  1. ACENCOUMAROL [Concomitant]
     Indication: ANTICOAGULANT THERAPY
     Dosage: AS INDICATED BY THROMBOSIS CENTER
     Route: 048
  2. BICALUTAMIDE [Concomitant]
     Indication: PROSTATE CANCER
     Route: 048
     Dates: start: 20101101
  3. ISOSORBIDE DINITRATE [Concomitant]
     Indication: ANGINA PECTORIS
     Route: 060
  4. ISOSORBIDE DINITRATE [Concomitant]
     Route: 048
  5. LEUPROLIDE ACETATE [Suspect]
     Indication: PROSTATE CANCER
     Route: 058
     Dates: start: 20101201
  6. SIMVASTATIN [Concomitant]
     Indication: BLOOD CHOLESTEROL INCREASED
     Route: 048
  7. DUTASTERIDE/TAMSULOSIN HYDROCHLORIDE [Suspect]
     Indication: URINARY RETENTION
     Dosage: 0.4MG/0.5MG
     Route: 048
  8. BISOPROLOL FUMARATE [Concomitant]
     Indication: ANGINA PECTORIS
     Route: 048
  9. PANTOPRAZOLE [Concomitant]
     Indication: PROPHYLAXIS
  10. METFORMIN HCL [Concomitant]
     Indication: DIABETES MELLITUS
     Route: 048
  11. TOLBUTAMIDE [Concomitant]
     Indication: TYPE 2 DIABETES MELLITUS
     Route: 048
  12. PANTOPRAZOLE [Concomitant]
     Indication: GASTRIC DISORDER
     Route: 048

REACTIONS (3)
  - HOT FLUSH [None]
  - STENT PLACEMENT [None]
  - VASCULAR GRAFT [None]
